FAERS Safety Report 9842375 (Version 2)
Quarter: 2014Q1

REPORT INFORMATION
  Report Type: Spontaneous
  Country: US (occurrence: US)
  Receive Date: 20140124
  Receipt Date: 20140124
  Transmission Date: 20141002
  Serious: No
  Sender: FDA-Public Use
  Company Number: US-GILEAD-2011-0036082

PATIENT
  Sex: Female

DRUGS (19)
  1. RANEXA [Suspect]
     Indication: PRODUCT USED FOR UNKNOWN INDICATION
  2. ASA [Concomitant]
  3. METFORMIN [Concomitant]
  4. OMEPRAZOLE [Concomitant]
  5. ZOCOR [Concomitant]
  6. LAMICTAL [Concomitant]
  7. BUSPIRONE [Concomitant]
  8. ZINC [Concomitant]
  9. NORTRIPTYLINE [Concomitant]
  10. SINGULAIR [Concomitant]
  11. GABAPENTIN [Concomitant]
  12. COLACE [Concomitant]
  13. CENTRUM [Concomitant]
  14. OSCAL [Concomitant]
  15. METOPROLOL [Concomitant]
  16. MOBIC [Concomitant]
  17. MAG ++ [Concomitant]
  18. IRON [Concomitant]
  19. IMDUR [Concomitant]

REACTIONS (1)
  - Weight decreased [Unknown]
